FAERS Safety Report 10775685 (Version 1)
Quarter: 2015Q1

REPORT INFORMATION
  Report Type: Spontaneous
  Country: US (occurrence: US)
  Receive Date: 20150209
  Receipt Date: 20150209
  Transmission Date: 20150721
  Serious: Yes (Hospitalization)
  Sender: FDA-Public Use
  Company Number: US-SA-2015SA013632

PATIENT
  Age: 63 Year
  Sex: Female

DRUGS (20)
  1. MINERALS NOS/VITAMINS NOS [Concomitant]
  2. NEXIUM [Concomitant]
     Active Substance: ESOMEPRAZOLE MAGNESIUM
     Dosage: FREQUENCY QAM BEFORE BREAKFAST
  3. K-LYTE [Concomitant]
     Dosage: DOSE 25MEQ6
  4. PLAVIX [Suspect]
     Active Substance: CLOPIDOGREL BISULFATE
     Indication: MYOCARDIAL INFARCTION
     Route: 065
     Dates: start: 20041030
  5. PROVENTIL [Concomitant]
     Active Substance: ALBUTEROL
     Indication: ASTHMA
     Dosage: STRENGTH: 2.5 MG/3ML FOR NEBULIZER MACHINE Q4H AS NEEDED
  6. PREMARIN [Concomitant]
     Active Substance: ESTROGENS, CONJUGATED
  7. ACCOLATE [Concomitant]
     Active Substance: ZAFIRLUKAST
  8. ANTARA [Concomitant]
     Active Substance: FENOFIBRATE
  9. PLAVIX [Suspect]
     Active Substance: CLOPIDOGREL BISULFATE
     Indication: MYOCARDIAL INFARCTION
     Route: 065
     Dates: start: 20041030
  10. TOPROL XL [Concomitant]
     Active Substance: METOPROLOL SUCCINATE
  11. DIOVAN [Concomitant]
     Active Substance: VALSARTAN
  12. NITROSTAT [Concomitant]
     Active Substance: NITROGLYCERIN
     Dosage: FREQUENCY: Q5MIN AS NEEDED.
  13. CIPROFLOXACIN. [Concomitant]
     Active Substance: CIPROFLOXACIN
  14. LACTOBACILLUS ACIDOPHILUS\LACTOBACILLUS BULGARICUS [Concomitant]
     Active Substance: LACTOBACILLUS ACIDOPHILUS\LACTOBACILLUS DELBRUECKII SUBSP. BULGARICUS
  15. THEOPHYLLINE [Concomitant]
     Active Substance: THEOPHYLLINE ANHYDROUS
  16. LASIX [Concomitant]
     Active Substance: FUROSEMIDE
     Dosage: FREQUENCY: BID AS NEEDED.
  17. CRESTOR [Concomitant]
     Active Substance: ROSUVASTATIN CALCIUM
  18. PROVENTIL [Concomitant]
     Active Substance: ALBUTEROL
     Indication: WHEEZING
     Dosage: STRENGTH: 2.5 MG/3ML FOR NEBULIZER MACHINE Q4H AS NEEDED
  19. ADVAIR DISKUS [Concomitant]
     Active Substance: FLUTICASONE PROPIONATE\SALMETEROL XINAFOATE
  20. EPIPEN [Concomitant]
     Active Substance: EPINEPHRINE
     Indication: ARTHROPOD STING

REACTIONS (5)
  - Body temperature increased [Unknown]
  - Red blood cell count increased [Unknown]
  - Limb discomfort [Unknown]
  - Infection [Unknown]
  - Pneumonia [Unknown]

NARRATIVE: CASE EVENT DATE: 201102
